FAERS Safety Report 4753053-5 (Version None)
Quarter: 2005Q3

REPORT INFORMATION
  Report Type: 
  Country: None (occurrence: None)
  Receive Date: 20050826
  Receipt Date: 20050429
  Transmission Date: 20060218
  Serious: Yes (Hospitalization)
  Sender: FDA-Public Use
  Company Number: US-MERCK-0505USA00093

PATIENT
  Age: 62 Year
  Sex: Male
  Weight: 160 kg

DRUGS (3)
  1. VIOXX [Suspect]
     Indication: ARTHRITIS
     Route: 048
     Dates: start: 20030225, end: 20030415
  2. VIOXX [Suspect]
     Route: 065
     Dates: start: 20030415
  3. ASPIRIN [Concomitant]
     Route: 065

REACTIONS (12)
  - ABDOMINAL DISTENSION [None]
  - CARDIAC FAILURE CONGESTIVE [None]
  - CORONARY ARTERY DISEASE [None]
  - DIABETES MELLITUS [None]
  - DYSPEPSIA [None]
  - DYSPNOEA [None]
  - GOUT [None]
  - HYPERLIPIDAEMIA [None]
  - HYPERTENSION [None]
  - HYPOTHYROIDISM [None]
  - MYOCARDIAL INFARCTION [None]
  - VOMITING [None]
